FAERS Safety Report 7092920-7 (Version None)
Quarter: 2010Q4

REPORT INFORMATION
  Report Type: 
  Country: None (occurrence: None)
  Receive Date: 20101110
  Receipt Date: 20101101
  Transmission Date: 20110411
  Serious: Yes (Other)
  Sender: FDA-Public Use
  Company Number: US-PFIZER INC-2010130701

PATIENT
  Sex: Female
  Weight: 50.794 kg

DRUGS (4)
  1. LYRICA [Suspect]
     Indication: TRIGEMINAL NEURALGIA
     Dosage: 150 MG, 1X/DAY
     Route: 048
     Dates: start: 20100909
  2. LYRICA [Suspect]
  3. DRONEDARONE [Concomitant]
     Indication: ATRIAL FIBRILLATION
     Dosage: UNK
  4. QUINIDINE [Concomitant]
     Indication: ATRIAL FIBRILLATION
     Dosage: UNK

REACTIONS (4)
  - DIPLOPIA [None]
  - FATIGUE [None]
  - INCONTINENCE [None]
  - SOMNOLENCE [None]
